FAERS Safety Report 10618131 (Version 1)
Quarter: 2014Q4

REPORT INFORMATION
  Report Type: Spontaneous
  Country: BR (occurrence: BR)
  Receive Date: 20141202
  Receipt Date: 20141202
  Transmission Date: 20150529
  Serious: Yes (Hospitalization)
  Sender: FDA-Public Use
  Company Number: BR-ASTRAZENECA-2014SE91548

PATIENT
  Sex: Female

DRUGS (3)
  1. CRESTOR [Suspect]
     Active Substance: ROSUVASTATIN CALCIUM
     Route: 048
  2. ATENSINA [Concomitant]
     Active Substance: CLONIDINE
     Indication: HYPERTENSION
     Route: 048
  3. PRESSAT [Concomitant]
     Active Substance: AMLODIPINE BESYLATE
     Indication: HYPERTENSION
     Route: 048

REACTIONS (1)
  - Arterial occlusive disease [Not Recovered/Not Resolved]

NARRATIVE: CASE EVENT DATE: 2014
